FAERS Safety Report 9735498 (Version 2)
Quarter: 2013Q4

REPORT INFORMATION
  Report Type: Spontaneous
  Country: US (occurrence: US)
  Receive Date: 20131206
  Receipt Date: 20131206
  Transmission Date: 20140711
  Serious: No
  Sender: FDA-Public Use
  Company Number: US-GILEAD-2009-0022783

PATIENT
  Age: 79 Year
  Sex: Female

DRUGS (8)
  1. LETAIRIS [Suspect]
     Indication: PULMONARY ARTERIAL HYPERTENSION
     Route: 048
  2. REVATIO [Concomitant]
  3. HYDROCHLOROTHIAZIDE [Concomitant]
  4. LISINOPRIL [Concomitant]
  5. OXYGEN [Concomitant]
  6. CALCIUM [Concomitant]
  7. ALBUTEROL [Concomitant]
  8. LASIX [Concomitant]

REACTIONS (1)
  - Epistaxis [Not Recovered/Not Resolved]
